FAERS Safety Report 4680101-3 (Version None)
Quarter: 2005Q2

REPORT INFORMATION
  Report Type: 
  Country: None (occurrence: None)
  Receive Date: 20050602
  Receipt Date: 20050524
  Transmission Date: 20051028
  Serious: Yes (Other)
  Sender: FDA-Public Use
  Company Number: JP-JNJFOC-20050404757

PATIENT
  Sex: Female

DRUGS (5)
  1. ITRIZOLE [Suspect]
     Route: 049
     Dates: start: 20050330, end: 20050405
  2. NETICONAZOLE HYDROCHLORIDE [Concomitant]
     Route: 061
  3. BETAMETHASONE SODIUM PHOSPHATE [Concomitant]
     Route: 061
  4. DIFLUCORTOLONE VALERATE [Concomitant]
     Indication: ECZEMA
     Route: 061
  5. ZINC OXIDE [Concomitant]
     Indication: ECZEMA
     Route: 061

REACTIONS (4)
  - DYSPHONIA [None]
  - ECZEMA [None]
  - HAEMOGLOBIN DECREASED [None]
  - LARYNGEAL OEDEMA [None]
